FAERS Safety Report 16056901 (Version 1)
Quarter: 2019Q1

REPORT INFORMATION
  Report Type: Report from Study
  Country: None (occurrence: US)
  Receive Date: 20190311
  Receipt Date: 20190311
  Transmission Date: 20190418
  Serious: Yes (Hospitalization, Other)
  Sender: FDA-Public Use
  Company Number: US-ABBVIE-19K-163-2647837-00

PATIENT
  Age: 63 Year
  Sex: Male
  Weight: 104.42 kg

DRUGS (4)
  1. CLARITIN [Concomitant]
     Active Substance: LORATADINE
     Indication: SEASONAL ALLERGY
  2. LISINOPRIL. [Concomitant]
     Active Substance: LISINOPRIL
     Indication: HYPERTENSION
  3. HUMIRA [Suspect]
     Active Substance: ADALIMUMAB
     Indication: CROHN^S DISEASE
     Route: 058
     Dates: start: 2000
  4. HUMIRA [Suspect]
     Active Substance: ADALIMUMAB
     Indication: CROHN^S DISEASE
     Route: 058

REACTIONS (9)
  - Abdominal hernia [Recovering/Resolving]
  - Crohn^s disease [Unknown]
  - Intra-abdominal haematoma [Recovered/Resolved]
  - Memory impairment [Not Recovered/Not Resolved]
  - Osteoarthritis [Recovered/Resolved]
  - Haemoglobin increased [Recovered/Resolved]
  - Procedural pain [Recovering/Resolving]
  - Inguinal hernia [Unknown]
  - Surgery [Unknown]

NARRATIVE: CASE EVENT DATE: 2015
